FAERS Safety Report 7956965-4 (Version None)
Quarter: 2011Q4

REPORT INFORMATION
  Report Type: 
  Country: None (occurrence: None)
  Receive Date: 20111205
  Receipt Date: 20111012
  Transmission Date: 20120403
  Serious: No
  Sender: FDA-Public Use
  Company Number: US-BAYER-2011-099220

PATIENT
  Age: 55 Year
  Sex: Female
  Weight: 61.224 kg

DRUGS (8)
  1. MULTI-VITAMIN [Concomitant]
  2. VITAMIN D [Concomitant]
  3. ALEVE (CAPLET) [Suspect]
     Indication: PAIN
     Dosage: 2 DF, BID
     Route: 048
     Dates: start: 20111006, end: 20111011
  4. BABY ASPIRIN GENERIC [Concomitant]
  5. CALCIUM [Concomitant]
  6. NEXIUM [Concomitant]
  7. SKELAXIN [Concomitant]
  8. FISH OIL [Concomitant]

REACTIONS (2)
  - MOUTH ULCERATION [None]
  - LIP PAIN [None]
